FAERS Safety Report 7769161-0 (Version None)
Quarter: 2011Q3

REPORT INFORMATION
  Report Type: 
  Country: None (occurrence: None)
  Receive Date: 20110922
  Receipt Date: 20110909
  Transmission Date: 20111222
  Serious: Yes (Hospitalization)
  Sender: FDA-Public Use
  Company Number: ES-ELI_LILLY_AND_COMPANY-ES201104002163

PATIENT
  Sex: Female
  Weight: 79 kg

DRUGS (11)
  1. FORTEO [Suspect]
     Indication: OSTEOPOROSIS
     Dosage: 20 UG, QD
     Route: 058
     Dates: start: 20100312, end: 20110905
  2. IDAPTAN [Concomitant]
     Indication: EAR DISORDER
     Dosage: 1 DF, BID
     Route: 048
  3. ACETAMINOPHEN [Concomitant]
     Indication: PAIN
     Dosage: 2 G, QD
     Route: 048
  4. NOLOTIL [Concomitant]
     Indication: PAIN
     Dosage: 2 DF, QD
     Route: 048
  5. HUMULINA [Concomitant]
     Indication: DIABETES MELLITUS
     Dosage: 1 DF, BID
     Route: 048
  6. OMEPRAZOLE [Concomitant]
     Indication: GASTRIC DISORDER
     Dosage: 20 MG, QD
     Route: 048
  7. CALCIUM CARBONATE [Concomitant]
     Indication: MINERAL SUPPLEMENTATION
     Dosage: 1 DF, BID
     Route: 048
  8. TARKA [Concomitant]
     Indication: HYPERTENSION
     Dosage: 1 DF, UNK
     Route: 048
  9. ALPRAZOLAM [Concomitant]
     Indication: ANXIETY
     Dosage: 2 MG, EACH EVENING
     Route: 048
     Dates: start: 19980101
  10. PRISDAL [Concomitant]
     Indication: DEPRESSION
     Dosage: 30 MG, QD
     Route: 048
  11. ASPIRIN [Concomitant]
     Indication: PERIPHERAL VASCULAR DISORDER
     Dosage: 100 MG, QD
     Route: 048

REACTIONS (1)
  - DEVICE DISLOCATION [None]
